FAERS Safety Report 4647809-7 (Version None)
Quarter: 2005Q2

REPORT INFORMATION
  Report Type: 
  Country: None (occurrence: None)
  Receive Date: 20050427
  Receipt Date: 20050427
  Transmission Date: 20051028
  Serious: Yes (Death)
  Sender: FDA-Public Use
  Company Number: None

PATIENT
  Sex: Male
  Weight: 52.2 kg

DRUGS (2)
  1. PACLITAXEL [Suspect]
     Indication: NON-SMALL CELL LUNG CANCER
     Dosage: 200MG/M2 IV OVER 3HR ON DAY 1, EVERY 21 DAYS X 6 CYCLES
     Route: 042
     Dates: start: 20021114
  2. CARBOPLATIN [Suspect]
     Indication: NON-SMALL CELL LUNG CANCER
     Dosage: AUC = 6 IV OVER 15-30 MIN ON DAY 1, EVERY 21 DAYS X 6 CYCLES
     Route: 042
     Dates: start: 20021114

REACTIONS (13)
  - COUGH [None]
  - DEHYDRATION [None]
  - DYSPNOEA [None]
  - HYPONATRAEMIA [None]
  - HYPOXIA [None]
  - NAUSEA [None]
  - PLEURAL EFFUSION [None]
  - PNEUMONIA [None]
  - RESPIRATORY FAILURE [None]
  - SINUS TACHYCARDIA [None]
  - SPUTUM DISCOLOURED [None]
  - TROPONIN T INCREASED [None]
  - VOMITING [None]
